FAERS Safety Report 7008667-9 (Version None)
Quarter: 2010Q3

REPORT INFORMATION
  Report Type: 
  Country: None (occurrence: None)
  Receive Date: 20100922
  Receipt Date: 20100908
  Transmission Date: 20110219
  Serious: Yes (Death)
  Sender: FDA-Public Use
  Company Number: IE-GENENTECH-306665

PATIENT
  Sex: Male

DRUGS (2)
  1. RANIBIZUMAB [Suspect]
     Indication: MACULAR DEGENERATION
     Dosage: 0.5 MG, UNK
     Route: 031
     Dates: start: 20090630
  2. RANIBIZUMAB [Suspect]
     Dosage: 0.5 MG, UNK
     Route: 031
     Dates: start: 20090728

REACTIONS (1)
  - DEATH [None]
